FAERS Safety Report 4696880-5 (Version None)
Quarter: 2005Q2

REPORT INFORMATION
  Report Type: 
  Country: None (occurrence: None)
  Receive Date: 20050620
  Receipt Date: 20050606
  Transmission Date: 20051028
  Serious: Yes (Other)
  Sender: FDA-Public Use
  Company Number: UA-2005-008555

PATIENT
  Age: 47 Year
  Sex: Female

DRUGS (3)
  1. CLIMEN 21(CYPROTERONE ACETATE, ESTRADIOL VALERATE) TABLET [Suspect]
     Indication: MENOPAUSAL SYMPTOMS
     Dosage: ORAL
     Route: 048
  2. MIRENA [Suspect]
     Dosage: 20 UG/DAY,CONT, INTRA-UTERINE
     Route: 015
     Dates: start: 20030101
  3. PROGYNOVA 2 MG (ESTRADIOL VALERATE) COATED TABLET [Suspect]
     Dates: start: 20030101, end: 20050101

REACTIONS (4)
  - BREAST CANCER FEMALE [None]
  - CONDITION AGGRAVATED [None]
  - DEPRESSION [None]
  - METRORRHAGIA [None]
